FAERS Safety Report 9482280 (Version 2)
Quarter: 2013Q3

REPORT INFORMATION
  Report Type: Spontaneous
  Country: US (occurrence: US)
  Receive Date: 20130828
  Receipt Date: 20130828
  Transmission Date: 20140515
  Serious: Yes (Hospitalization)
  Sender: FDA-Public Use
  Company Number: US-TEVA-2005-US-00202

PATIENT
  Age: 39 Year
  Sex: Female

DRUGS (8)
  1. FLUOXETINE HCL CAPSULES USP, 10MG, 20 MG, 40 MG [Suspect]
  2. LINEZOLID [Interacting]
  3. DISULFIRAM [Concomitant]
  4. BUSPIRONE [Concomitant]
  5. CYCLOBENZAPRINE [Concomitant]
  6. FOLATE SODIUM [Concomitant]
  7. LORAZEPAM [Concomitant]
  8. HALOPERIDOL [Concomitant]

REACTIONS (2)
  - Drug interaction [Unknown]
  - Serotonin syndrome [Unknown]
